FAERS Safety Report 4525093-2 (Version None)
Quarter: 2004Q4

REPORT INFORMATION
  Report Type: 
  Country: None (occurrence: None)
  Receive Date: 20041210
  Receipt Date: 20041124
  Transmission Date: 20050328
  Serious: Yes (Other)
  Sender: FDA-Public Use
  Company Number: DSA_25454_2004

PATIENT
  Sex: Female

DRUGS (2)
  1. CARDIZEM [Suspect]
     Dosage: DF
  2. CARDIZEM [Suspect]
     Dosage: DF

REACTIONS (2)
  - DIPLOPIA [None]
  - VITH NERVE PARALYSIS [None]
